FAERS Safety Report 20509335 (Version 1)
Quarter: 2022Q1

REPORT INFORMATION
  Report Type: Report from Study
  Country: US (occurrence: US)
  Receive Date: 20220223
  Receipt Date: 20220223
  Transmission Date: 20220423
  Serious: Yes (Other)
  Sender: FDA-Public Use
  Company Number: US-ABBVIE-22K-163-4289814-00

PATIENT
  Sex: Female

DRUGS (1)
  1. IMBRUVICA [Suspect]
     Active Substance: IBRUTINIB
     Indication: Waldenstrom^s macroglobulinaemia
     Dosage: ON HOLD TILL 08-FEB-2022 (NO INFORMATION IF IT HAS RESTARTED AFTER 08 FEB 2022)
     Route: 048
     Dates: start: 20210904, end: 20220128

REACTIONS (1)
  - Cholecystectomy [Unknown]
